FAERS Safety Report 25958051 (Version 1)
Quarter: 2025Q4

REPORT INFORMATION
  Report Type: Report from Study
  Country: CN (occurrence: CN)
  Receive Date: 20251024
  Receipt Date: 20251024
  Transmission Date: 20260118
  Serious: Yes (Other)
  Sender: NOVARTIS
  Company Number: CN-002147023-NVSC2025CN161529

PATIENT

DRUGS (5)
  1. LEQVIO [Suspect]
     Active Substance: INCLISIRAN SODIUM
     Indication: Hyperlipidaemia
     Dosage: 1 DOSAGE FORM
     Route: 058
  2. LEQVIO [Suspect]
     Active Substance: INCLISIRAN SODIUM
     Dosage: 1 DOSAGE FORM
     Route: 058
     Dates: start: 20240110, end: 20240110
  3. LEQVIO [Suspect]
     Active Substance: INCLISIRAN SODIUM
     Dosage: 1 DOSAGE FORM
     Route: 058
     Dates: start: 20240410, end: 20240410
  4. LEQVIO [Suspect]
     Active Substance: INCLISIRAN SODIUM
     Dosage: 1 DOSAGE FORM
     Route: 058
     Dates: start: 20241010, end: 20241010
  5. LEQVIO [Suspect]
     Active Substance: INCLISIRAN SODIUM
     Dosage: 1 DOSAGE FORM
     Route: 058
     Dates: start: 20250410, end: 20250410

REACTIONS (7)
  - Blood triglycerides increased [Unknown]
  - Bilirubin conjugated decreased [Unknown]
  - Blood glucose increased [Unknown]
  - Anion gap decreased [Unknown]
  - High density lipoprotein decreased [Unknown]
  - Apolipoprotein E increased [Unknown]
  - Drug ineffective [Unknown]

NARRATIVE: CASE EVENT DATE: 20251014
